FAERS Safety Report 6092096-9 (Version None)
Quarter: 2009Q1

REPORT INFORMATION
  Report Type: 
  Country: None (occurrence: None)
  Receive Date: 20090219
  Receipt Date: 20081103
  Transmission Date: 20090719
  Serious: No
  Sender: FDA-Public Use
  Company Number: WAES 0809USA00515

PATIENT
  Age: 43 Year
  Sex: Female
  Weight: 158.759 kg

DRUGS (1)
  1. JANUVIA [Suspect]
     Indication: DIABETES MELLITUS
     Dosage: 50 MG/DAILY/PO
     Route: 048

REACTIONS (2)
  - RASH GENERALISED [None]
  - RASH PRURITIC [None]
